FAERS Safety Report 12833670 (Version 2)
Quarter: 2018Q2

REPORT INFORMATION
  Report Type: Report from Study
  Country: FR (occurrence: FR)
  Receive Date: 20161010
  Receipt Date: 20180413
  Transmission Date: 20180711
  Serious: Yes (Hospitalization, Other)
  Sender: FDA-Public Use
  Company Number: FR-B.I. PHARMACEUTICALS,INC./RIDGEFIELD-2015-BI-46256BI

PATIENT
  Age: 75 Year
  Sex: Male
  Weight: 91 kg

DRUGS (7)
  1. DIAMICRON [Concomitant]
     Active Substance: GLICLAZIDE
     Indication: DIABETES MELLITUS
     Route: 048
     Dates: start: 20140130
  2. LERCAN [Concomitant]
     Active Substance: LERCANIDIPINE
     Indication: HYPERTENSION
     Route: 065
     Dates: start: 20130311, end: 20130311
  3. KARDEGIC [Concomitant]
     Active Substance: ASPIRIN DL-LYSINE
     Indication: CAROTID ARTERIOSCLEROSIS
     Route: 048
     Dates: start: 20150722
  4. INNEXIUM [Concomitant]
     Indication: HIATUS HERNIA
     Route: 048
     Dates: start: 20130429
  5. BLINDED BI 1356 [Suspect]
     Active Substance: LINAGLIPTIN
     Indication: TYPE 2 DIABETES MELLITUS
     Route: 065
     Dates: start: 20120322, end: 20130228
  6. LERCAN [Concomitant]
     Active Substance: LERCANIDIPINE
     Route: 048
     Dates: start: 20140904
  7. PRAVASTATIN. [Concomitant]
     Active Substance: PRAVASTATIN
     Indication: HYPERCHOLESTEROLAEMIA
     Route: 048
     Dates: start: 20111120

REACTIONS (4)
  - Metastasis [Recovered/Resolved]
  - Metastases to adrenals [Recovered/Resolved with Sequelae]
  - Intestinal metastasis [Recovered/Resolved]
  - Renal cancer metastatic [Not Recovered/Not Resolved]

NARRATIVE: CASE EVENT DATE: 20150603
